FAERS Safety Report 8572485-0 (Version None)
Quarter: 2012Q3

REPORT INFORMATION
  Report Type: 
  Country: None (occurrence: None)
  Receive Date: 20120806
  Receipt Date: 20120726
  Transmission Date: 20120928
  Serious: Yes (Hospitalization)
  Sender: FDA-Public Use
  Company Number: CN-ASTRAZENECA-2012SE54236

PATIENT
  Sex: Male
  Weight: 62 kg

DRUGS (2)
  1. SEROQUEL [Suspect]
     Route: 048
  2. TANDOSPIRONE CITRATE [Concomitant]
     Route: 048

REACTIONS (1)
  - HEPATIC FUNCTION ABNORMAL [None]
